FAERS Safety Report 14108941 (Version 1)
Quarter: 2017Q4

REPORT INFORMATION
  Report Type: Report from Study
  Country: JP (occurrence: JP)
  Receive Date: 20171019
  Receipt Date: 20171019
  Transmission Date: 20180321
  Serious: Yes (Hospitalization, Other)
  Sender: FDA-Public Use
  Company Number: JP-CELGENEUS-JPN-2016074854

PATIENT
  Age: 55 Year
  Sex: Female
  Weight: 70.6 kg

DRUGS (20)
  1. POMALYST [Suspect]
     Active Substance: POMALIDOMIDE
     Dosage: 4MG
     Route: 048
     Dates: start: 20151112, end: 20151202
  2. LENADEX [Suspect]
     Active Substance: DEXAMETHASONE ACETATE
     Dosage: 8MG
     Route: 048
     Dates: start: 20150917, end: 20151001
  3. LENADEX [Suspect]
     Active Substance: DEXAMETHASONE ACETATE
     Dosage: 8MG
     Route: 048
     Dates: start: 20151015, end: 20151029
  4. CLARITH [Concomitant]
     Active Substance: CLARITHROMYCIN
     Indication: SUPPORTIVE CARE
     Dosage: 400 MILLIGRAM
     Route: 048
  5. MAGMITT [Concomitant]
     Active Substance: MAGNESIUM OXIDE
     Indication: CONSTIPATION
     Dosage: 660 MILLIGRAM
     Route: 048
  6. LENADEX [Suspect]
     Active Substance: DEXAMETHASONE ACETATE
     Indication: PLASMA CELL MYELOMA
     Dosage: 8MG
     Route: 048
     Dates: start: 20150722, end: 20150812
  7. DAITALIC [Concomitant]
     Active Substance: AZOSEMIDE
     Indication: PRODUCT USED FOR UNKNOWN INDICATION
     Route: 048
  8. POMALYST [Suspect]
     Active Substance: POMALIDOMIDE
     Indication: PLASMA CELL MYELOMA
     Dosage: 2MG
     Route: 048
     Dates: start: 20150722, end: 20150812
  9. LENADEX [Suspect]
     Active Substance: DEXAMETHASONE ACETATE
     Dosage: 8MG
     Route: 048
     Dates: start: 20150820, end: 20150903
  10. POMALYST [Suspect]
     Active Substance: POMALIDOMIDE
     Dosage: 4MG
     Route: 048
     Dates: start: 20150820, end: 20150909
  11. ACICLOVIR [Concomitant]
     Active Substance: ACYCLOVIR
     Indication: PRODUCT USED FOR UNKNOWN INDICATION
     Dosage: 200 MILLIGRAM
     Route: 048
  12. POMALYST [Suspect]
     Active Substance: POMALIDOMIDE
     Dosage: 4MG
     Route: 048
     Dates: start: 20150917, end: 20151007
  13. POMALYST [Suspect]
     Active Substance: POMALIDOMIDE
     Dosage: 4MG
     Route: 048
     Dates: start: 20151015, end: 20151104
  14. LENADEX [Suspect]
     Active Substance: DEXAMETHASONE ACETATE
     Dosage: 8MG
     Route: 048
     Dates: start: 20151210, end: 20151224
  15. LENADEX [Suspect]
     Active Substance: DEXAMETHASONE ACETATE
     Dosage: 8MG
     Route: 048
     Dates: end: 20160316
  16. PARIET [Concomitant]
     Active Substance: RABEPRAZOLE SODIUM
     Indication: GASTROOESOPHAGEAL REFLUX DISEASE
     Dosage: 100 MILLIGRAM
     Route: 048
  17. DIAMOX SEQUELS [Concomitant]
     Active Substance: ACETAZOLAMIDE
     Indication: SUPPORTIVE CARE
     Dosage: 500 MILLIGRAM
     Route: 048
     Dates: start: 20160122, end: 20160124
  18. LENADEX [Suspect]
     Active Substance: DEXAMETHASONE ACETATE
     Dosage: 8MG
     Route: 048
     Dates: start: 20151112, end: 20151126
  19. POMALYST [Suspect]
     Active Substance: POMALIDOMIDE
     Dosage: 4MG
     Route: 048
     Dates: start: 20151210, end: 20151230
  20. POMALYST [Suspect]
     Active Substance: POMALIDOMIDE
     Dosage: 4MG
     Route: 048
     Dates: end: 20160316

REACTIONS (6)
  - Infection [Unknown]
  - Sinus node dysfunction [Recovered/Resolved]
  - Cardiac failure congestive [Unknown]
  - Cardiac failure acute [Recovering/Resolving]
  - Cataract [Recovered/Resolved with Sequelae]
  - Hyperuricaemia [Unknown]

NARRATIVE: CASE EVENT DATE: 20150909
